FAERS Safety Report 9859167 (Version 3)
Quarter: 2014Q2

REPORT INFORMATION
  Report Type: Spontaneous
  Country: US (occurrence: None)
  Receive Date: 20140129
  Receipt Date: 20140522
  Transmission Date: 20141212
  Serious: Yes (Other)
  Sender: FDA-Public Use
  Company Number: 2014-US-000588

PATIENT
  Age: 54 Year
  Sex: Male
  Weight: 154.2 kg

DRUGS (4)
  1. XYREM [Suspect]
     Indication: NARCOLEPSY
     Route: 048
     Dates: start: 201311
  2. NUVIGIL (ARMODAFINIL) [Concomitant]
  3. LEXAPRO (ESCITALOPRAM OXALATE) [Concomitant]
  4. STRATTERA (ATORMOXETINE HYDRCHLORIDE) [Concomitant]

REACTIONS (6)
  - Accidental overdose [None]
  - Bilevel positive airway pressure [None]
  - Memory impairment [None]
  - Fatigue [None]
  - Fatigue [None]
  - Drug ineffective [None]
